FAERS Safety Report 18987057 (Version 1)
Quarter: 2021Q1

REPORT INFORMATION
  Report Type: Spontaneous
  Country: US (occurrence: US)
  Receive Date: 20210309
  Receipt Date: 20210309
  Transmission Date: 20210420
  Serious: Yes (Hospitalization)
  Sender: FDA-Public Use
  Company Number: None

PATIENT
  Sex: Male
  Weight: 69.6 kg

DRUGS (2)
  1. CYTARABINE. [Suspect]
     Active Substance: CYTARABINE
  2. RITUXIMAB (MOAB C2B8 ANTI CD20, CHIMERIC) [Concomitant]
     Active Substance: RITUXIMAB

REACTIONS (3)
  - Back pain [None]
  - Arthralgia [None]
  - Pneumonia [None]

NARRATIVE: CASE EVENT DATE: 20210305
